FAERS Safety Report 4383115-6 (Version None)
Quarter: 2004Q2

REPORT INFORMATION
  Report Type: 
  Country: None (occurrence: None)
  Receive Date: 20040618
  Receipt Date: 20040527
  Transmission Date: 20050107
  Serious: Yes (Life-Threatening)
  Sender: FDA-Public Use
  Company Number: JP_040503231

PATIENT
  Age: 61 Year
  Sex: Female
  Weight: 45 kg

DRUGS (3)
  1. GEMZAR [Suspect]
     Indication: PANCREATIC CARCINOMA
     Dosage: 1400 MG/M2 OTHER
     Dates: start: 20030818, end: 20030818
  2. MS CONTIN [Concomitant]
  3. LOXONIN(LOXOPROFEN SODIUM) [Concomitant]

REACTIONS (3)
  - INTERSTITIAL LUNG DISEASE [None]
  - MALIGNANT NEOPLASM PROGRESSION [None]
  - PANCREATIC CARCINOMA STAGE IV [None]
